FAERS Safety Report 11661342 (Version 1)
Quarter: 2015Q4

REPORT INFORMATION
  Report Type: Spontaneous
  Country: US (occurrence: US)
  Receive Date: 20151026
  Receipt Date: 20151026
  Transmission Date: 20160304
  Serious: Yes (Hospitalization, Other)
  Sender: FDA-Public Use
  Company Number: US-SMITH AND NEPHEW, INC-2015SMT00412

PATIENT
  Sex: Female
  Weight: 112.47 kg

DRUGS (5)
  1. UNSPECIFIED DIABETES MEDICATION(S) [Concomitant]
  2. ELIQUIS [Concomitant]
     Active Substance: APIXABAN
  3. BYETTA [Concomitant]
     Active Substance: EXENATIDE
     Indication: DIABETES MELLITUS
     Dosage: UNK
  4. UNSPECIFIED BLOOD PRESSURE MEDICATION(S) [Concomitant]
     Indication: BLOOD PRESSURE MEASUREMENT
     Dosage: UNK
  5. REGRANEX [Suspect]
     Active Substance: BECAPLERMIN
     Indication: SKIN ULCER
     Dosage: UNK UNK, 1X/DAY
     Route: 061
     Dates: start: 2015, end: 2015

REACTIONS (6)
  - Chronic kidney disease [Unknown]
  - Toe amputation [Recovered/Resolved with Sequelae]
  - Application site discolouration [Recovered/Resolved with Sequelae]
  - Application site cellulitis [Recovered/Resolved with Sequelae]
  - Osteomyelitis [Recovered/Resolved with Sequelae]
  - Application site infection [Recovered/Resolved with Sequelae]

NARRATIVE: CASE EVENT DATE: 2015
